FAERS Safety Report 18851907 (Version 1)
Quarter: 2021Q1

REPORT INFORMATION
  Report Type: Report from Study
  Country: ZA (occurrence: ZA)
  Receive Date: 20210205
  Receipt Date: 20210205
  Transmission Date: 20210420
  Serious: Yes (Hospitalization, Other)
  Sender: FDA-Public Use
  Company Number: ZA-GILEAD-2021-0515635

PATIENT
  Age: 23 Year
  Sex: Female

DRUGS (3)
  1. FOLATE [Concomitant]
     Active Substance: FOLATE SODIUM
  2. EMTRICITABINE;TENOFOVIR DISOPROXIL FUMARATE [Suspect]
     Active Substance: EMTRICITABINE\TENOFOVIR DISOPROXIL FUMARATE
     Indication: PROPHYLAXIS AGAINST HIV INFECTION
     Route: 065
  3. FERROUS SULPHATE + FOLIC ACID [Concomitant]

REACTIONS (2)
  - Maternal exposure during pregnancy [Not Recovered/Not Resolved]
  - COVID-19 pneumonia [Unknown]

NARRATIVE: CASE EVENT DATE: 20201223
